FAERS Safety Report 12010164 (Version 1)
Quarter: 2016Q1

REPORT INFORMATION
  Report Type: Spontaneous
  Country: US (occurrence: None)
  Receive Date: 20160204
  Receipt Date: 20160204
  Transmission Date: 20160526
  Serious: Yes (Hospitalization, Disabling)
  Sender: FDA-Public Use
  Company Number: None

PATIENT
  Age: 59 Year
  Sex: Female
  Weight: 61.24 kg

DRUGS (12)
  1. FOSAMAX [Suspect]
     Active Substance: ALENDRONATE SODIUM
     Indication: OSTEOPENIA
     Route: 048
     Dates: start: 20030401, end: 20130214
  2. PRAVASTATIN [Concomitant]
     Active Substance: PRAVASTATIN\PRAVASTATIN SODIUM
  3. CALCIUM [Concomitant]
     Active Substance: CALCIUM
  4. OXYCODONE [Concomitant]
     Active Substance: OXYCODONE
  5. FISH OIL [Concomitant]
     Active Substance: FISH OIL
  6. VERAPAMIL [Concomitant]
     Active Substance: VERAPAMIL HYDROCHLORIDE
  7. VITAMIN C [Concomitant]
     Active Substance: ASCORBIC ACID
  8. VITAMIN D [Concomitant]
     Active Substance: CHOLECALCIFEROL
  9. NAPROXEN. [Concomitant]
     Active Substance: NAPROXEN
  10. COENZYME Q [Concomitant]
  11. FORTEO [Concomitant]
     Active Substance: TERIPARATIDE
  12. MULTIPLE VITAMINS [Concomitant]
     Active Substance: VITAMINS

REACTIONS (4)
  - Atypical femur fracture [None]
  - Arthralgia [None]
  - Pain in extremity [None]
  - Fracture delayed union [None]

NARRATIVE: CASE EVENT DATE: 20150922
